FAERS Safety Report 25169728 (Version 2)
Quarter: 2025Q2

REPORT INFORMATION
  Report Type: Spontaneous
  Country: BR (occurrence: BR)
  Receive Date: 20250407
  Receipt Date: 20250423
  Transmission Date: 20250717
  Serious: Yes (Hospitalization, Other)
  Sender: ELI LILLY AND COMPANY
  Company Number: BR-ELI_LILLY_AND_COMPANY-BR202503023714

PATIENT
  Age: 38 Year
  Sex: Male
  Weight: 60 kg

DRUGS (4)
  1. HUMALOG [Suspect]
     Active Substance: INSULIN LISPRO
     Indication: Product used for unknown indication
     Route: 065
  2. HUMALOG [Suspect]
     Active Substance: INSULIN LISPRO
     Route: 065
  3. HUMALOG [Suspect]
     Active Substance: INSULIN LISPRO
     Route: 065
  4. HUMALOG [Suspect]
     Active Substance: INSULIN LISPRO
     Route: 065

REACTIONS (7)
  - Fall [Unknown]
  - Femur fracture [Unknown]
  - Fall [Unknown]
  - Lower limb fracture [Unknown]
  - Fall [Unknown]
  - Tibia fracture [Unknown]
  - Osteoporosis [Unknown]

NARRATIVE: CASE EVENT DATE: 20231207
